FAERS Safety Report 8594410-9 (Version None)
Quarter: 2012Q3

REPORT INFORMATION
  Report Type: 
  Country: None (occurrence: None)
  Receive Date: 20120815
  Receipt Date: 20120807
  Transmission Date: 20120928
  Serious: No
  Sender: FDA-Public Use
  Company Number: US-BIOGENIDEC-2012BI016501

PATIENT
  Sex: Female

DRUGS (1)
  1. AVONEX [Suspect]
     Indication: MULTIPLE SCLEROSIS
     Route: 030
     Dates: start: 20010608

REACTIONS (5)
  - UPPER LIMB FRACTURE [None]
  - WRIST FRACTURE [None]
  - HYPOTENSION [None]
  - FALL [None]
  - BALANCE DISORDER [None]
